FAERS Safety Report 6557929-8 (Version None)
Quarter: 2010Q1

REPORT INFORMATION
  Report Type: 
  Country: None (occurrence: None)
  Receive Date: 20100129
  Receipt Date: 20100121
  Transmission Date: 20100710
  Serious: Yes (Hospitalization)
  Sender: FDA-Public Use
  Company Number: DE-WYE-H12203009

PATIENT
  Age: 63 Year
  Sex: Female
  Weight: 65 kg

DRUGS (2)
  1. PANTOPRAZOLE [Suspect]
     Indication: GASTRIC ULCER
     Route: 048
     Dates: start: 20090610
  2. VALSARTAN [Concomitant]
     Indication: HYPERTENSION
     Dates: start: 20070608

REACTIONS (3)
  - FAECALOMA [None]
  - LASEGUE'S TEST POSITIVE [None]
  - SYNCOPE [None]
